FAERS Safety Report 7509248-0 (Version None)
Quarter: 2011Q2

REPORT INFORMATION
  Report Type: 
  Country: None (occurrence: None)
  Receive Date: 20110527
  Receipt Date: 20110524
  Transmission Date: 20111010
  Serious: Yes (Hospitalization, Other)
  Sender: FDA-Public Use
  Company Number: CA-ABBOTT-11P-028-0725581-00

PATIENT
  Sex: Female
  Weight: 118.04 kg

DRUGS (8)
  1. MEDICATION FOR RHEUMATOID ARTHRITIS [Concomitant]
     Indication: RHEUMATOID ARTHRITIS
  2. HUMIRA [Suspect]
     Indication: RHEUMATOID ARTHRITIS
     Route: 058
     Dates: start: 20050322, end: 20110401
  3. DESMOPRESSIN ACETATE [Concomitant]
     Indication: HYPERTONIC BLADDER
     Route: 048
     Dates: end: 20110515
  4. OMEPRAZOLE [Concomitant]
     Indication: GASTRIC DISORDER
     Route: 048
  5. APO-ALPRAZ [Concomitant]
     Indication: SLEEP DISORDER THERAPY
     Route: 048
  6. HUMIRA [Suspect]
     Route: 058
     Dates: start: 20110521
  7. MEDICATION FOR HIGH BLOOD PRESSURE [Concomitant]
     Indication: HYPERTENSION
  8. CYCLOBENZAPRINE [Concomitant]
     Indication: MUSCLE RELAXANT THERAPY
     Route: 048

REACTIONS (6)
  - WEIGHT INCREASED [None]
  - FALL [None]
  - BLOOD SODIUM DECREASED [None]
  - ASTHENIA [None]
  - ARTHRITIS [None]
  - BLOOD POTASSIUM DECREASED [None]
